FAERS Safety Report 20207354 (Version 1)
Quarter: 2021Q4

REPORT INFORMATION
  Report Type: Spontaneous
  Country: US (occurrence: None)
  Receive Date: 20211220
  Receipt Date: 20211220
  Transmission Date: 20220303
  Serious: No
  Sender: FDA-Public Use
  Company Number: 2021A832087

PATIENT
  Age: 750 Month
  Sex: Male
  Weight: 106.6 kg

DRUGS (1)
  1. PULMICORT FLEXHALER [Suspect]
     Active Substance: BUDESONIDE
     Indication: Cough
     Dosage: 90MCG 2 PUFFS TWICE DAILY
     Route: 055
     Dates: start: 202111

REACTIONS (7)
  - Cough [Not Recovered/Not Resolved]
  - Drug ineffective [Unknown]
  - Off label use [Not Recovered/Not Resolved]
  - Incorrect dose administered by device [Unknown]
  - Medication error [Unknown]
  - Product label confusion [Unknown]
  - Device malfunction [Unknown]

NARRATIVE: CASE EVENT DATE: 20211101
